FAERS Safety Report 6211280-4 (Version None)
Quarter: 2009Q2

REPORT INFORMATION
  Report Type: 
  Country: None (occurrence: None)
  Receive Date: 20090602
  Receipt Date: 20090525
  Transmission Date: 20091009
  Serious: Yes (Hospitalization, Other)
  Sender: FDA-Public Use
  Company Number: PHHY2009US20317

PATIENT
  Age: 11 Year
  Sex: Male

DRUGS (9)
  1. CYCLOSPORINE [Suspect]
     Indication: APLASTIC ANAEMIA
     Dosage: 250 MG, BID
     Route: 048
  2. CYCLOSPORINE [Suspect]
     Dosage: 375 MG/DAY
  3. ANTI-THYMOCYTE GLOBULIN NOS [Concomitant]
     Indication: APLASTIC ANAEMIA
  4. GRANULOCYTE-MACROPHAGE COLONY STIMULATING FAC [Concomitant]
     Indication: APLASTIC ANAEMIA
  5. SOLU-MEDROL [Concomitant]
     Indication: PROPHYLAXIS
     Dosage: 50 MG, BID
     Route: 042
  6. VANCOMYCIN HCL [Concomitant]
     Indication: PYREXIA
  7. CEFTAZIDIME [Concomitant]
     Indication: PYREXIA
  8. FLUCONAZOLE [Concomitant]
     Indication: PYREXIA
  9. AMPHOTERICIN B [Suspect]
     Indication: PYREXIA

REACTIONS (9)
  - BLOOD MAGNESIUM DECREASED [None]
  - CAECITIS [None]
  - EYE MOVEMENT DISORDER [None]
  - GRAND MAL CONVULSION [None]
  - HALLUCINATION, VISUAL [None]
  - HEADACHE [None]
  - HYPERTENSION [None]
  - REVERSIBLE POSTERIOR LEUKOENCEPHALOPATHY SYNDROME [None]
  - VISUAL IMPAIRMENT [None]
